FAERS Safety Report 13133513 (Version 1)
Quarter: 2017Q1

REPORT INFORMATION
  Report Type: Spontaneous
  Country: US (occurrence: US)
  Receive Date: 20170119
  Receipt Date: 20170119
  Transmission Date: 20170428
  Serious: Yes (Death)
  Sender: FDA-Public Use
  Company Number: None

PATIENT
  Age: 73 Year
  Sex: Male
  Weight: 60 kg

DRUGS (1)
  1. ABRAXANE [Suspect]
     Active Substance: PACLITAXEL
     Indication: PANCREATIC CARCINOMA
     Dosage: 150MG/M2 EVERY 2 WEEKS IV
     Route: 042
     Dates: start: 20161019, end: 20161214

REACTIONS (3)
  - Disease progression [None]
  - Multiple organ dysfunction syndrome [None]
  - Pancreatic carcinoma metastatic [None]

NARRATIVE: CASE EVENT DATE: 20170112
